FAERS Safety Report 24199779 (Version 2)
Quarter: 2024Q3

REPORT INFORMATION
  Report Type: Spontaneous
  Country: ES (occurrence: ES)
  Receive Date: 20240812
  Receipt Date: 20240819
  Transmission Date: 20241017
  Serious: Yes (Life-Threatening, Hospitalization, Other)
  Sender: AUROBINDO
  Company Number: ES-PFIZER INC-PV202400100975

PATIENT
  Age: 65 Year
  Sex: Male

DRUGS (11)
  1. VORICONAZOLE [Suspect]
     Active Substance: VORICONAZOLE
     Indication: Aspergillus infection
     Dosage: 3 MILLIGRAM/KILOGRAM, ONCE A DAY
     Route: 042
  2. VORICONAZOLE [Suspect]
     Active Substance: VORICONAZOLE
     Indication: Lower respiratory tract infection bacterial
     Dosage: 8 MILLIGRAM/KILOGRAM, ONCE A DAY (4 MG/KG, EVERY 12 HOURS ON THE FIRST DAY)
     Route: 042
  3. VORICONAZOLE [Suspect]
     Active Substance: VORICONAZOLE
     Indication: Bronchopulmonary aspergillosis
     Dosage: 12 MILLIGRAM/KILOGRAM, ONCE A DAY (6 MG/KG, EVERY 12 HOURS, MAINTENANCE DOSES)
     Route: 042
  4. VORICONAZOLE [Suspect]
     Active Substance: VORICONAZOLE
     Dosage: UNK, CONTINUED TREATMENT FOR 2 WEEKS
     Route: 065
  5. VORICONAZOLE [Suspect]
     Active Substance: VORICONAZOLE
     Dosage: 4 MILLIGRAM/KILOGRAM, TWO TIMES A DAY (ON THE FIRST DAY)
     Route: 042
  6. VORICONAZOLE [Suspect]
     Active Substance: VORICONAZOLE
     Dosage: 6 MILLIGRAM/KILOGRAM, TWO TIMES A DAY (MAINTENANCE DOSES)
     Route: 042
  7. CEFTAZIDIME [Concomitant]
     Active Substance: CEFTAZIDIME
     Indication: Lower respiratory tract infection bacterial
     Dosage: 4 MILLIGRAM/KILOGRAM, TWO TIMES A DAY (FIRST DAY)
     Route: 042
  8. CEFTAZIDIME [Concomitant]
     Active Substance: CEFTAZIDIME
     Dosage: 6 MILLIGRAM/KILOGRAM, TWO TIMES A DAY (MAINTENANCE DOSES)
     Route: 042
  9. AMPHOTERICIN B [Concomitant]
     Active Substance: AMPHOTERICIN B
     Indication: Bronchopulmonary aspergillosis
     Dosage: 25 MILLIGRAM, ONCE A DAY (NEBULIZED: 25 MG IN A DAILY NEBULIZATION)
  10. AMPHOTERICIN B [Concomitant]
     Active Substance: AMPHOTERICIN B
     Dosage: 4 MILLIGRAM/KILOGRAM, TWO TIMES A DAY
     Route: 042
  11. AMPHOTERICIN B [Concomitant]
     Active Substance: AMPHOTERICIN B
     Dosage: 6 MILLIGRAM/KILOGRAM, TWO TIMES A DAY
     Route: 042

REACTIONS (4)
  - Anaemia [Unknown]
  - Halo vision [Unknown]
  - Visual impairment [Unknown]
  - Condition aggravated [Unknown]
